FAERS Safety Report 23276567 (Version 1)
Quarter: 2023Q4

REPORT INFORMATION
  Report Type: Report from Study
  Country: US (occurrence: US)
  Receive Date: 20231208
  Receipt Date: 20231208
  Transmission Date: 20240110
  Serious: Yes (Death)
  Sender: FDA-Public Use
  Company Number: US-MIRATI-MT2023PM05479

PATIENT
  Sex: Male
  Weight: 83.447 kg

DRUGS (2)
  1. KRAZATI [Suspect]
     Active Substance: ADAGRASIB
     Indication: Neuroendocrine tumour
     Dosage: 600 MG, BID
     Route: 048
     Dates: start: 202310, end: 202311
  2. KRAZATI [Suspect]
     Active Substance: ADAGRASIB
     Indication: Small cell lung cancer

REACTIONS (1)
  - Death [Fatal]

NARRATIVE: CASE EVENT DATE: 20231203
